FAERS Safety Report 17554803 (Version 3)
Quarter: 2020Q3

REPORT INFORMATION
  Report Type: Spontaneous
  Country: AT (occurrence: AT)
  Receive Date: 20200318
  Receipt Date: 20200706
  Transmission Date: 20201102
  Serious: Yes (Hospitalization, Other)
  Sender: FDA-Public Use
  Company Number: AT-MACLEODS PHARMACEUTICALS US LTD-MAC2020025402

PATIENT

DRUGS (8)
  1. ARIPIPRAZOLE  5 MG [Suspect]
     Active Substance: ARIPIPRAZOLE
     Indication: DEPRESSION
     Dosage: 5 MILLIGRAM, QD,
     Route: 065
  2. ARIPIPRAZOLE  5 MG [Interacting]
     Active Substance: ARIPIPRAZOLE
     Indication: CONSTIPATION
  3. DULOXETINE 30 MG [Interacting]
     Active Substance: DULOXETINE
     Indication: DEPRESSION
     Dosage: 30 MILLIGRAM, QD
     Route: 065
  4. BISOPROLOL 1.25 MG [Interacting]
     Active Substance: BISOPROLOL
     Indication: HYPERTENSION
     Dosage: 1.25 MILLIGRAM, QD
     Route: 065
  5. ARIPIPRAZOLE  5 MG [Interacting]
     Active Substance: ARIPIPRAZOLE
     Indication: SLEEP DISORDER
  6. CANDESARTAN. [Interacting]
     Active Substance: CANDESARTAN
     Indication: HYPERTENSION
     Dosage: UNK 32/12MG QD
     Route: 065
  7. DULOXETINE 30 MG [Interacting]
     Active Substance: DULOXETINE
     Indication: CONSTIPATION
  8. DULOXETINE 30 MG [Interacting]
     Active Substance: DULOXETINE
     Indication: SLEEP DISORDER

REACTIONS (13)
  - Drug interaction [Recovered/Resolved]
  - Ophthalmoplegia [Recovered/Resolved]
  - Toxicity to various agents [Recovered/Resolved]
  - Musculoskeletal stiffness [Recovered/Resolved]
  - Immobile [Recovered/Resolved]
  - Drug level increased [Recovered/Resolved]
  - Asthenia [Recovered/Resolved]
  - Myalgia [Recovered/Resolved]
  - Eye pain [Unknown]
  - Musculoskeletal toxicity [Recovered/Resolved]
  - Walking disability [Recovered/Resolved]
  - Drug metabolising enzyme decreased [Recovered/Resolved]
  - Myopathy [Recovered/Resolved]
